FAERS Safety Report 24882031 (Version 2)
Quarter: 2025Q1

REPORT INFORMATION
  Report Type: Report from Study
  Country: CA (occurrence: CA)
  Receive Date: 20250124
  Receipt Date: 20250128
  Transmission Date: 20250409
  Serious: Yes (Other)
  Sender: AMGEN
  Company Number: CA-AMGEN-CANSL2024182655

PATIENT
  Age: 30 Year
  Sex: Female

DRUGS (3)
  1. WEZLANA [Suspect]
     Active Substance: USTEKINUMAB-AUUB
     Indication: Colitis ulcerative
     Route: 065
     Dates: start: 20240808
  2. WEZLANA [Suspect]
     Active Substance: USTEKINUMAB-AUUB
     Dosage: 90 MILLIGRAM, Q8WK
     Route: 065
  3. WEZLANA [Suspect]
     Active Substance: USTEKINUMAB-AUUB
     Dosage: 90 MILLIGRAM, Q8WK
     Route: 065
     Dates: start: 20250123

REACTIONS (11)
  - Diarrhoea haemorrhagic [Not Recovered/Not Resolved]
  - Hypothermia [Recovered/Resolved]
  - Colitis ulcerative [Unknown]
  - Vomiting [Unknown]
  - Fatigue [Unknown]
  - Frequent bowel movements [Unknown]
  - Treatment noncompliance [Unknown]
  - Diarrhoea [Recovered/Resolved]
  - Hyperhidrosis [Unknown]
  - Oral herpes [Unknown]
  - Oral fungal infection [Unknown]

NARRATIVE: CASE EVENT DATE: 20241201
